FAERS Safety Report 9583849 (Version 2)
Quarter: 2013Q4

REPORT INFORMATION
  Report Type: Spontaneous
  Country: US (occurrence: US)
  Receive Date: 20131002
  Receipt Date: 20131002
  Transmission Date: 20140711
  Serious: No
  Sender: FDA-Public Use
  Company Number: US-AMGEN-USASP2013048279

PATIENT
  Age: 37 Year
  Sex: Female

DRUGS (1)
  1. ENBREL [Suspect]
     Indication: PSORIASIS
     Dosage: 50 MG, QWK
     Route: 065
     Dates: start: 20130227

REACTIONS (6)
  - Pain [Recovered/Resolved]
  - Respiratory tract congestion [Recovered/Resolved]
  - Lacrimation increased [Recovered/Resolved]
  - Photosensitivity reaction [Recovered/Resolved]
  - Platelet count decreased [Unknown]
  - Sinusitis [Recovered/Resolved]
